FAERS Safety Report 4472010-X (Version None)
Quarter: 2004Q3

REPORT INFORMATION
  Report Type: 
  Country: None (occurrence: None)
  Receive Date: 20040909
  Receipt Date: 20040604
  Transmission Date: 20050211
  Serious: Yes (Hospitalization)
  Sender: FDA-Public Use
  Company Number: F03200400048

PATIENT
  Age: 68 Year
  Sex: Female
  Weight: 83 kg

DRUGS (9)
  1. OXALIPLATIN [Suspect]
     Indication: COLORECTAL CANCER METASTATIC
     Dosage: INTRAVENOUS NOS
     Route: 042
     Dates: start: 20030910, end: 20030910
  2. PTK/ZK 222584 VS PLACEBO [Suspect]
     Indication: COLORECTAL CANCER METASTATIC
     Dates: start: 20031105, end: 20031113
  3. LOSARTAN POTASSIUM [Concomitant]
  4. ROGLITAZONE MALEATE [Concomitant]
  5. FU-FLUOROURACIL- [Suspect]
     Indication: COLORECTAL CANCER METASTATIC
     Dates: start: 20030910
  6. LEUCOVORIN [Suspect]
     Indication: COLORECTAL CANCER METASTATIC
  7. LEVOTHYROXINE SODIUM [Concomitant]
  8. GABAPENTIN [Concomitant]
  9. INSULIN GLARGINE [Concomitant]

REACTIONS (2)
  - DEEP VEIN THROMBOSIS [None]
  - OEDEMA PERIPHERAL [None]
